FAERS Safety Report 25225482 (Version 1)
Quarter: 2025Q2

REPORT INFORMATION
  Report Type: Spontaneous
  Country: US (occurrence: US)
  Receive Date: 20250422
  Receipt Date: 20250422
  Transmission Date: 20250716
  Serious: No
  Sender: PFIZER
  Company Number: US-PFIZER INC-202400018474

PATIENT
  Age: 54 Year
  Sex: Female

DRUGS (2)
  1. CIBINQO [Suspect]
     Active Substance: ABROCITINIB
     Indication: Dermatitis
     Dosage: 100 MG, DAILY IN THE MORNING
     Route: 048
  2. CIBINQO [Suspect]
     Active Substance: ABROCITINIB
     Route: 048

REACTIONS (4)
  - Acne [Unknown]
  - Pruritus [Unknown]
  - Intentional product misuse [Unknown]
  - Off label use [Unknown]
